FAERS Safety Report 8543977-5 (Version None)
Quarter: 2012Q3

REPORT INFORMATION
  Report Type: 
  Country: None (occurrence: None)
  Receive Date: 20120717
  Receipt Date: 20120706
  Transmission Date: 20120928
  Serious: Yes (Hospitalization, Other)
  Sender: FDA-Public Use
  Company Number: ADR-2012-00933

PATIENT
  Sex: Female

DRUGS (2)
  1. LIORESAL [Suspect]
     Indication: STIFF PERSON SYNDROME
     Dosage: 999.7 MCG/DAY
  2. LIORESAL [Suspect]
     Indication: MUSCLE SPASTICITY
     Dosage: 999.7 MCG/DAY

REACTIONS (10)
  - DEVICE BREAKAGE [None]
  - INCISION SITE COMPLICATION [None]
  - SWELLING [None]
  - CONDITION AGGRAVATED [None]
  - MUSCLE SPASMS [None]
  - MUSCLE SPASTICITY [None]
  - FALL [None]
  - POST PROCEDURAL COMPLICATION [None]
  - TREATMENT NONCOMPLIANCE [None]
  - DEVICE ISSUE [None]
